FAERS Safety Report 9887133 (Version 1)
Quarter: 2014Q1

REPORT INFORMATION
  Report Type: Spontaneous
  Country: US (occurrence: US)
  Receive Date: 20140211
  Receipt Date: 20140211
  Transmission Date: 20141002
  Serious: No
  Sender: FDA-Public Use
  Company Number: US-BIOGENIDEC-2014BI013509

PATIENT
  Age: 34 Year
  Sex: Male

DRUGS (1)
  1. AVONEX [Suspect]
     Indication: MULTIPLE SCLEROSIS
     Route: 030
     Dates: start: 20050325, end: 20131115

REACTIONS (3)
  - Hepatic function abnormal [Recovered/Resolved]
  - Nephrolithiasis [Recovered/Resolved]
  - Multiple sclerosis relapse [Recovered/Resolved]
